FAERS Safety Report 8243812-9 (Version None)
Quarter: 2012Q1

REPORT INFORMATION
  Report Type: 
  Country: None (occurrence: None)
  Receive Date: 20120329
  Receipt Date: 20120120
  Transmission Date: 20120608
  Serious: No
  Sender: FDA-Public Use
  Company Number: US-MYLANLABS-2012S1001484

PATIENT
  Age: 66 Year
  Sex: Female

DRUGS (5)
  1. MICARDIS [Concomitant]
     Indication: BLOOD PRESSURE
     Route: 048
  2. NASONEX [Concomitant]
     Indication: RHINITIS
     Route: 055
  3. EMSAM [Suspect]
     Indication: DEPRESSION
     Dosage: QD
     Route: 062
     Dates: start: 20110601
  4. SEROQUEL [Concomitant]
     Indication: MOOD SWINGS
     Route: 048
  5. MELOXICAM [Concomitant]
     Indication: ARTHRITIS
     Route: 048

REACTIONS (2)
  - APPLICATION SITE ERYTHEMA [None]
  - NASOPHARYNGITIS [None]
